FAERS Safety Report 8971102 (Version 1)
Quarter: 2012Q4

REPORT INFORMATION
  Report Type: 
  Country: MX (occurrence: MX)
  Receive Date: 20121218
  Receipt Date: 20121218
  Transmission Date: 20130627
  Serious: Yes (Hospitalization)
  Sender: FDA-Public Use
  Company Number: PHHY2012MX115656

PATIENT
  Age: 72 Year
  Sex: Male

DRUGS (4)
  1. ONBREZ [Suspect]
     Indication: BRONCHIAL DISORDER
     Dosage: 300 ug, QD
     Dates: start: 201211, end: 20121123
  2. MICARDIS [Concomitant]
     Indication: HYPERTENSION
     Dosage: 0.5 DF, daily
     Dates: start: 2009
  3. UNIVAL//LANSOPRAZOLE [Concomitant]
     Indication: ABDOMINAL DISCOMFORT
     Dosage: 1 DF, UNK
     Dates: start: 2009
  4. ASPIRIN [Concomitant]
     Dosage: 1 DF, UNK
     Dates: start: 2009

REACTIONS (3)
  - Ileus paralytic [Recovered/Resolved]
  - Discomfort [Recovered/Resolved]
  - Constipation [Recovered/Resolved]
